FAERS Safety Report 6460306-1 (Version None)
Quarter: 2009Q4

REPORT INFORMATION
  Report Type: 
  Country: None (occurrence: None)
  Receive Date: 20091124
  Receipt Date: 20091116
  Transmission Date: 20100525
  Serious: Yes (Hospitalization)
  Sender: FDA-Public Use
  Company Number: 2009AC000315

PATIENT
  Age: 67 Year
  Sex: Male

DRUGS (33)
  1. DIGOXIN [Suspect]
     Dosage: 0.25 MG; QD; PO
     Route: 048
  2. PLAVIX [Concomitant]
  3. ASPIRIN [Concomitant]
  4. ZETIA [Concomitant]
  5. ALBUTEROL [Concomitant]
  6. LEVAQUIN [Concomitant]
  7. LISINOPRIL [Concomitant]
  8. GABAPENTIN [Concomitant]
  9. SIMVASTATIN [Concomitant]
  10. SOTALOL HCL [Concomitant]
  11. LYRICA [Concomitant]
  12. METOPROLOL [Concomitant]
  13. LEVAQUIN [Concomitant]
  14. IMDUR [Concomitant]
  15. ADALAT [Concomitant]
  16. ZOCOR [Concomitant]
  17. PROCARDIA [Concomitant]
  18. DICLOFENAC [Concomitant]
  19. BETAPACE [Concomitant]
  20. CENTRUM [Concomitant]
  21. FISH OIL [Concomitant]
  22. NITROGLYCERIN [Concomitant]
  23. VITAMIN B COMPLEX CAP [Concomitant]
  24. COUMADIN [Concomitant]
  25. DIFLUCONAC [Concomitant]
  26. AMIODARONE HCL [Concomitant]
  27. PREVACID [Concomitant]
  28. PREDNISONE [Concomitant]
  29. ISOSORBIDE [Concomitant]
  30. VYTORIN [Concomitant]
  31. MULTI-VITAMIN [Concomitant]
  32. ASCORBIC ACID [Concomitant]
  33. EXCEDRIN (MIGRAINE) [Concomitant]

REACTIONS (23)
  - ACQUIRED DIAPHRAGMATIC EVENTRATION [None]
  - ACUTE MYOCARDIAL INFARCTION [None]
  - ANAEMIA [None]
  - ARTERIOSCLEROSIS CORONARY ARTERY [None]
  - ASTHENIA [None]
  - ATELECTASIS [None]
  - ATRIAL FIBRILLATION [None]
  - CARDIAC ARREST [None]
  - CARDIOMEGALY [None]
  - CHEST PAIN [None]
  - DIZZINESS [None]
  - FATIGUE [None]
  - GASTROINTESTINAL HAEMORRHAGE [None]
  - HAEMATOMA [None]
  - HYPERLIPIDAEMIA [None]
  - HYPERTENSION [None]
  - MELAENA [None]
  - OEDEMA PERIPHERAL [None]
  - PAIN IN EXTREMITY [None]
  - PRESYNCOPE [None]
  - SEROMA [None]
  - SYNOVIAL CYST [None]
  - ULCER [None]
